FAERS Safety Report 20925239 (Version 3)
Quarter: 2023Q4

REPORT INFORMATION
  Report Type: Spontaneous
  Country: US (occurrence: US)
  Receive Date: 20220607
  Receipt Date: 20231105
  Transmission Date: 20240110
  Serious: No
  Sender: FDA-Public Use
  Company Number: US-PHARMAESSENTIA CORPORATION-US-2022-PEC-000529

PATIENT
  Sex: Female

DRUGS (6)
  1. BESREMI [Suspect]
     Active Substance: ROPEGINTERFERON ALFA-2B-NJFT
     Indication: Myeloproliferative neoplasm
     Dosage: 100 MICROGRAM, EVERY 14 DAYS
     Route: 058
     Dates: start: 20220302
  2. BESREMI [Suspect]
     Active Substance: ROPEGINTERFERON ALFA-2B-NJFT
     Dosage: 100 MCG, EVERY 3 WEEKS
     Route: 058
  3. ALLEGRA [Concomitant]
     Active Substance: FEXOFENADINE HYDROCHLORIDE
     Indication: Hypersensitivity
     Dosage: 60 MILLIGRAM, QD
     Route: 065
  4. CHLORTHALIDONE [Concomitant]
     Active Substance: CHLORTHALIDONE
     Indication: Blood pressure measurement
     Route: 065
  5. SINGULAIR [Concomitant]
     Active Substance: MONTELUKAST SODIUM
     Indication: Hypersensitivity
     Dosage: 10 MG, QD
     Route: 065
  6. FLONASE [Concomitant]
     Active Substance: FLUTICASONE PROPIONATE
     Indication: Product used for unknown indication
     Route: 045

REACTIONS (26)
  - Feeling hot [Not Recovered/Not Resolved]
  - Anxiety [Unknown]
  - Burning sensation [Unknown]
  - Hunger [Not Recovered/Not Resolved]
  - Asthma [Unknown]
  - Weight increased [Not Recovered/Not Resolved]
  - Cough [Unknown]
  - Feeling abnormal [Unknown]
  - Blood creatinine increased [Unknown]
  - Myalgia [Not Recovered/Not Resolved]
  - Haematocrit decreased [Recovered/Resolved]
  - Night sweats [Unknown]
  - Pruritus [Unknown]
  - Sleep disorder [Unknown]
  - Malaise [Not Recovered/Not Resolved]
  - Depressed mood [Unknown]
  - Influenza like illness [Unknown]
  - Hypersensitivity [Unknown]
  - Fatigue [Unknown]
  - Eye pruritus [Unknown]
  - Hypersomnia [Unknown]
  - Platelet count increased [Not Recovered/Not Resolved]
  - Nephrolithiasis [Unknown]
  - Dehydration [Unknown]
  - Off label use [Unknown]
  - Product dose omission issue [Unknown]

NARRATIVE: CASE EVENT DATE: 20220303
